FAERS Safety Report 12454494 (Version 1)
Quarter: 2016Q2

REPORT INFORMATION
  Report Type: Spontaneous
  Country: DE (occurrence: DE)
  Receive Date: 20160610
  Receipt Date: 20160610
  Transmission Date: 20160815
  Serious: Yes (Other)
  Sender: FDA-Public Use
  Company Number: DE-BAXTER-2016BAX028965

PATIENT
  Age: 63 Year
  Sex: Female

DRUGS (2)
  1. URMITEXAN TABLETTEN 400 MG [Suspect]
     Active Substance: MESNA
     Indication: PRODUCT USED FOR UNKNOWN INDICATION
     Route: 065
  2. UROMITEXAN 400 MG [Suspect]
     Active Substance: MESNA
     Indication: PRODUCT USED FOR UNKNOWN INDICATION
     Dosage: DURING 3RD CHEMOTHERAPY ADMINISTRATION
     Route: 065

REACTIONS (3)
  - Drug dose omission [Unknown]
  - Blood test abnormal [Unknown]
  - Renal impairment [Unknown]
